FAERS Safety Report 25377889 (Version 1)
Quarter: 2025Q2

REPORT INFORMATION
  Report Type: Spontaneous
  Country: US (occurrence: US)
  Receive Date: 20250530
  Receipt Date: 20250530
  Transmission Date: 20250716
  Serious: Yes (Other)
  Sender: BIOVITRUM
  Company Number: US-BIOVITRUM-2025-US-007394

PATIENT

DRUGS (2)
  1. PALIFERMIN [Suspect]
     Active Substance: PALIFERMIN
     Indication: Graft versus host disease
     Route: 042
  2. PALIFERMIN [Suspect]
     Active Substance: PALIFERMIN
     Indication: Prophylaxis
     Route: 042

REACTIONS (1)
  - Pancreatitis [Unknown]
